FAERS Safety Report 20566512 (Version 3)
Quarter: 2022Q2

REPORT INFORMATION
  Report Type: Report from Study
  Country: FR (occurrence: FR)
  Receive Date: 20220308
  Receipt Date: 20220412
  Transmission Date: 20220721
  Serious: Yes (Hospitalization)
  Sender: FDA-Public Use
  Company Number: FR-SERVIER-S22002209

PATIENT

DRUGS (8)
  1. PEGASPARGASE [Suspect]
     Active Substance: PEGASPARGASE
     Indication: Acute lymphocytic leukaemia
     Dosage: 2400 IU, D15 AND D43
     Route: 042
     Dates: start: 20211029, end: 20211203
  2. CYCLOPHOSPHAMIDE [Suspect]
     Active Substance: CYCLOPHOSPHAMIDE
     Indication: Acute lymphocytic leukaemia
     Dosage: 980 MG, D1 AND D29
     Route: 042
     Dates: start: 20211016, end: 20211119
  3. CYTARABINE [Suspect]
     Active Substance: CYTARABINE
     Indication: Acute lymphocytic leukaemia
     Dosage: 74 MG
     Route: 042
     Dates: start: 20211031, end: 20211202
  4. CYTARABINE [Suspect]
     Active Substance: CYTARABINE
     Dosage: 30 MG, D3, D16, D31, D46
     Route: 037
     Dates: start: 20210818, end: 20211206
  5. MERCAPTOPURINE [Suspect]
     Active Substance: MERCAPTOPURINE
     Indication: Acute lymphocytic leukaemia
     Dosage: 56 MG, D1 TO D14, D29 TO D42
     Route: 048
     Dates: start: 20211016, end: 20211202
  6. TN UNSPECIFIED [Concomitant]
     Indication: Acute lymphocytic leukaemia
     Dosage: 1.4 MG, D15, D22, D43, D50
     Route: 042
     Dates: start: 20211029, end: 20211210
  7. TN UNSPECIFIED [Concomitant]
     Indication: Acute lymphocytic leukaemia
     Dosage: 12 MG, D3, D16, D31, D46
     Route: 037
     Dates: start: 20210818, end: 20211206
  8. TN UNSPECIFIED [Concomitant]
     Indication: Acute lymphocytic leukaemia
     Dosage: 15 MG, D3, D16, D31, D46
     Route: 037
     Dates: start: 20210818, end: 20211206

REACTIONS (2)
  - Febrile bone marrow aplasia [Recovered/Resolved]
  - Bronchopulmonary aspergillosis [Recovered/Resolved]

NARRATIVE: CASE EVENT DATE: 20211229
